FAERS Safety Report 5858596-9 (Version None)
Quarter: 2008Q3

REPORT INFORMATION
  Report Type: 
  Country: None (occurrence: None)
  Receive Date: 20080826
  Receipt Date: 20080815
  Transmission Date: 20090109
  Serious: Yes (Other)
  Sender: FDA-Public Use
  Company Number: AU-ELI_LILLY_AND_COMPANY-AU200808003704

PATIENT
  Age: 58 Year
  Sex: Male

DRUGS (11)
  1. CYMBALTA [Suspect]
     Indication: DEPRESSION
     Dosage: 60 MG, DAILY (1/D)
     Route: 048
     Dates: start: 20080701
  2. SEROQUEL [Concomitant]
     Dosage: 300 MG, DAILY (1/D)
     Route: 048
  3. TEMAZEPAM [Concomitant]
     Dosage: 2 MG, UNKNOWN
     Route: 048
  4. VALIUM [Concomitant]
     Dosage: 8 MG, UNKNOWN
     Route: 048
  5. LYRICA [Concomitant]
     Dosage: UNK, UNKNOWN
     Route: 048
  6. NEULACTIL [Concomitant]
     Dosage: UNK, UNKNOWN
     Route: 048
  7. ENDONE [Concomitant]
     Dosage: UNK, UNKNOWN
     Route: 048
  8. PANADEINE [Concomitant]
     Dosage: UNK, UNKNOWN
     Route: 048
  9. IRBESARTAN [Concomitant]
     Indication: BLOOD PRESSURE MANAGEMENT
     Dosage: UNK, UNKNOWN
     Route: 048
  10. STATIN                             /00084401/ [Concomitant]
     Indication: BLOOD CHOLESTEROL INCREASED
     Dosage: UNK, UNKNOWN
     Route: 048
  11. AVANZA [Concomitant]
     Dosage: UNK, UNKNOWN
     Route: 065

REACTIONS (1)
  - TRANSIENT ISCHAEMIC ATTACK [None]
